FAERS Safety Report 20332605 (Version 1)
Quarter: 2022Q1

REPORT INFORMATION
  Report Type: Spontaneous
  Country: GB (occurrence: None)
  Receive Date: 20220113
  Receipt Date: 20220113
  Transmission Date: 20220423
  Serious: Yes (Hospitalization)
  Sender: FDA-Public Use
  Company Number: 2022A020921

PATIENT
  Age: 90 Year
  Sex: Male
  Weight: 69.8 kg

DRUGS (2)
  1. LOSEC [Suspect]
     Active Substance: OMEPRAZOLE
     Indication: Gastrooesophageal reflux disease
     Dosage: UNK, BID(2 DAILY)
     Route: 048
     Dates: start: 20211201, end: 20211212
  2. ATENOLOL [Concomitant]
     Active Substance: ATENOLOL
     Indication: Ill-defined disorder
     Route: 065

REACTIONS (2)
  - Campylobacter infection [Recovering/Resolving]
  - Medication error [Recovered/Resolved]

NARRATIVE: CASE EVENT DATE: 20211212
